FAERS Safety Report 5148714-2 (Version None)
Quarter: 2006Q4

REPORT INFORMATION
  Report Type: 
  Country: None (occurrence: None)
  Receive Date: 20061113
  Receipt Date: 20050819
  Transmission Date: 20070319
  Serious: Yes (Hospitalization)
  Sender: FDA-Public Use
  Company Number: JP-NOVOPROD-246382

PATIENT
  Age: 4 Year
  Sex: Male
  Weight: 11 kg

DRUGS (1)
  1. NORDITROPIN SIMPLEXX [Suspect]
     Indication: GROWTH HORMONE DEFICIENCY
     Dosage: 0.3 - 0.4 MG
     Dates: start: 20040901, end: 20050731

REACTIONS (3)
  - HEADACHE [None]
  - INTRACRANIAL PRESSURE INCREASED [None]
  - VITH NERVE PARALYSIS [None]
